FAERS Safety Report 5521771-7 (Version None)
Quarter: 2007Q4

REPORT INFORMATION
  Report Type: 
  Country: None (occurrence: None)
  Receive Date: 20071120
  Receipt Date: 20071112
  Transmission Date: 20080405
  Serious: Yes (Hospitalization)
  Sender: FDA-Public Use
  Company Number: DE-ROCHE-383894

PATIENT
  Age: 46 Year
  Sex: Male
  Weight: 85.3 kg

DRUGS (108)
  1. MYCOPHENOLATE MOFETIL [Suspect]
     Route: 048
     Dates: start: 20040927, end: 20040927
  2. MYCOPHENOLATE MOFETIL [Suspect]
     Route: 048
     Dates: start: 20040928, end: 20040928
  3. MYCOPHENOLATE MOFETIL [Suspect]
     Route: 048
     Dates: start: 20040929
  4. MYCOPHENOLATE MOFETIL [Suspect]
     Route: 048
     Dates: start: 20041002, end: 20041002
  5. MYCOPHENOLATE MOFETIL [Suspect]
     Route: 048
     Dates: start: 20041003
  6. MYCOPHENOLATE MOFETIL [Suspect]
     Route: 048
     Dates: start: 20041005
  7. MYCOPHENOLATE MOFETIL [Suspect]
     Route: 048
     Dates: start: 20041007, end: 20041008
  8. MYCOPHENOLATE MOFETIL [Suspect]
     Route: 048
     Dates: start: 20041009
  9. MYCOPHENOLATE MOFETIL [Suspect]
     Route: 048
     Dates: start: 20050714, end: 20050719
  10. DACLIZUMAB [Suspect]
     Route: 042
     Dates: start: 20040927, end: 20040927
  11. DACLIZUMAB [Suspect]
     Route: 042
     Dates: start: 20041011, end: 20041011
  12. DACLIZUMAB [Suspect]
     Route: 042
     Dates: start: 20041025, end: 20041025
  13. DACLIZUMAB [Suspect]
     Route: 042
     Dates: start: 20041108, end: 20041108
  14. DACLIZUMAB [Suspect]
     Route: 042
     Dates: start: 20041123, end: 20041123
  15. SIROLIMUS [Suspect]
     Route: 048
     Dates: start: 20040927
  16. SIROLIMUS [Suspect]
     Route: 048
     Dates: start: 20050715
  17. SIROLIMUS [Suspect]
     Route: 048
     Dates: start: 20050728
  18. SIROLIMUS [Suspect]
     Route: 048
     Dates: start: 20050820
  19. SIROLIMUS [Suspect]
     Route: 048
     Dates: start: 20050826
  20. SIROLIMUS [Suspect]
     Route: 048
     Dates: start: 20050829
  21. PREDNISOLONE [Suspect]
     Route: 048
     Dates: start: 20040927
  22. PREDNISOLONE [Suspect]
     Route: 048
     Dates: start: 20041222
  23. PREDNISOLONE [Suspect]
     Route: 048
     Dates: start: 20041223
  24. PREDNISOLONE [Suspect]
     Route: 048
     Dates: start: 20041226
  25. PREDNISOLONE [Suspect]
     Route: 048
     Dates: start: 20041231
  26. PREDNISOLONE [Suspect]
     Route: 048
     Dates: start: 20050102
  27. PREDNISOLONE [Suspect]
     Route: 048
     Dates: start: 20050217
  28. PREDNISOLONE [Suspect]
     Route: 048
     Dates: start: 20070217
  29. PREDNISOLONE [Suspect]
     Route: 048
     Dates: start: 20050224
  30. PREDNISOLONE [Suspect]
     Dosage: FREQUENCY REPORTED ON ONCE UNIQUE
     Route: 048
     Dates: start: 20050411
  31. PREDNISOLONE [Suspect]
     Dosage: FREQUENCY REPORTED ON ONCE UNIQUE
     Route: 048
     Dates: start: 20050411
  32. PREDNISOLONE [Suspect]
     Dosage: ON ONCE UNIQUE
     Route: 048
     Dates: start: 20050412
  33. PREDNISOLONE [Suspect]
     Route: 048
     Dates: start: 20050510
  34. PREDNISOLONE [Suspect]
     Dosage: PREDNISOLON DOSE TAPERED BETWEEN 12.5 MG TO 30 MG RANGE.
     Route: 048
     Dates: start: 20050525
  35. PREDNISOLONE [Suspect]
     Route: 048
     Dates: start: 20050623
  36. PREDNISOLONE [Suspect]
     Route: 048
     Dates: start: 20050628
  37. PREDNISOLONE [Suspect]
     Route: 048
     Dates: start: 20050714
  38. CIPROFLOXACIN [Suspect]
     Indication: DRUG USE FOR UNKNOWN INDICATION
     Route: 065
     Dates: start: 20050119
  39. CIPROFLOXACIN [Suspect]
     Route: 065
     Dates: start: 20050119
  40. CIPROFLOXACIN [Suspect]
     Route: 065
     Dates: start: 20050330
  41. RAMIPRIL [Suspect]
     Indication: DRUG USE FOR UNKNOWN INDICATION
     Route: 065
     Dates: start: 20041003
  42. ACETYLCYSTEINE [Concomitant]
     Dates: start: 20041001, end: 20041005
  43. ACETYLCYSTEINE [Concomitant]
     Dates: start: 20041006
  44. ACYCLOVIR [Concomitant]
     Dates: start: 20050108
  45. AMIODARONE HCL [Concomitant]
     Dates: start: 20040930
  46. AMIODARONE HCL [Concomitant]
     Dates: start: 20041003
  47. AMLODIPINE [Concomitant]
     Dates: start: 20040930
  48. AMPHOTERICIN B [Concomitant]
     Dates: start: 20040928
  49. ATORVASTATIN CALCIUM [Concomitant]
     Dates: start: 20041113
  50. ATORVASTATIN CALCIUM [Concomitant]
     Dates: start: 20050104
  51. CEFUROXIME [Concomitant]
     Dates: start: 20040928
  52. CLONIDIN [Concomitant]
     Dates: start: 20041006
  53. CLONIDIN [Concomitant]
     Dosage: UNIT REPORTED AS MG IT CAN NOT BE IN MG HENCE UNIT MENTIONE AS MICROGRAM.
     Dates: start: 20050730
  54. DARBEPOETIN ALFA [Concomitant]
     Dates: start: 20050323
  55. DARBEPOETIN ALFA [Concomitant]
     Dates: start: 20050420
  56. DARBEPOETIN ALFA [Concomitant]
     Dates: start: 20050604
  57. DARBEPOETIN ALFA [Concomitant]
     Dates: start: 20050621
  58. DIHYDRALAZIN [Concomitant]
     Dosage: FREQUENCY REPORTED AS 24 ON ONCE (UNIQUE)
     Dates: start: 20040930
  59. DIHYDRALAZIN [Concomitant]
     Dates: start: 20041001
  60. DIHYDRALAZIN [Concomitant]
     Dates: start: 20050725
  61. DIHYDRALAZIN [Concomitant]
     Dates: start: 20050726
  62. DIHYDRALAZIN [Concomitant]
     Dates: start: 20050815
  63. FUROSEMIDE [Concomitant]
     Dates: start: 20040112
  64. FUROSEMIDE [Concomitant]
     Dates: start: 20041213
  65. FUROSEMIDE [Concomitant]
     Dates: start: 20041214
  66. FUROSEMIDE [Concomitant]
     Dates: start: 20041223
  67. FUROSEMIDE [Concomitant]
     Dates: start: 20041223
  68. FUROSEMIDE [Concomitant]
     Dates: start: 20041224
  69. FUROSEMIDE [Concomitant]
     Dates: start: 20041226
  70. FUROSEMIDE [Concomitant]
     Dates: start: 20041226
  71. FUROSEMIDE [Concomitant]
     Dates: start: 20041227
  72. FUROSEMIDE [Concomitant]
     Dates: start: 20041228
  73. FUROSEMIDE [Concomitant]
     Dates: start: 20041228
  74. FUROSEMIDE [Concomitant]
     Dates: start: 20041229
  75. FUROSEMIDE [Concomitant]
     Dates: start: 20050105
  76. FUROSEMIDE [Concomitant]
     Dates: start: 20070817
  77. KALINOR BRAUSE [Concomitant]
     Dates: start: 20040102
  78. KALINOR BRAUSE [Concomitant]
     Dates: start: 20041223
  79. KALINOR BRAUSE [Concomitant]
     Dates: start: 20041226
  80. KALINOR BRAUSE [Concomitant]
     Dates: start: 20041228
  81. KALINOR BRAUSE [Concomitant]
     Dates: start: 20050103
  82. KALINOR BRAUSE [Concomitant]
     Dates: start: 20050104
  83. KALINOR BRAUSE [Concomitant]
     Dates: start: 20050105
  84. KALINOR BRAUSE [Concomitant]
     Dates: start: 20050106
  85. LEVOFLOXACIN [Concomitant]
     Dates: start: 20041001
  86. LORAZEPAM [Concomitant]
     Dates: start: 20040930
  87. METOPROLOL [Concomitant]
     Dates: start: 20040928
  88. MOXONIDINE [Concomitant]
     Dates: start: 20050118
  89. MOXONIDINE [Concomitant]
     Dates: start: 20050720
  90. MOXONIDINE [Concomitant]
     Dates: start: 20050722
  91. MOXONIDINE [Concomitant]
     Dates: start: 20050823
  92. NEBACETIN [Concomitant]
     Dates: start: 20050108
  93. ROXITHROMYCIN [Concomitant]
     Dates: start: 20050714
  94. ROXITHROMYCIN [Concomitant]
     Dates: start: 20050722
  95. ROXITHROMYCIN [Concomitant]
     Dates: start: 20050819
  96. SIMVASTATIN [Concomitant]
     Dates: start: 20050406
  97. SIMVASTATIN [Concomitant]
     Dates: start: 20050728
  98. SIMVASTATIN [Concomitant]
     Dates: start: 20050812
  99. TAZOBACTAM [Concomitant]
     Dates: start: 20050113
  100. TAZOBACTAM [Concomitant]
     Dates: start: 20050715
  101. URAPIDIL [Concomitant]
     Dates: start: 20040928
  102. VORICONAZOL [Concomitant]
     Dates: start: 20050716
  103. VORICONAZOL [Concomitant]
     Dates: start: 20050716
  104. VORICONAZOL [Concomitant]
     Dates: start: 20050717
  105. VORICONAZOL [Concomitant]
     Dates: start: 20050811
  106. VORICONAZOL [Concomitant]
     Dates: start: 20050812
  107. PRIMAXIN [Concomitant]
     Dates: start: 20050719
  108. GANCICLOVIR [Concomitant]
     Dates: start: 20050716

REACTIONS (5)
  - ANGIOEDEMA [None]
  - BLOOD CREATININE INCREASED [None]
  - DEHYDRATION [None]
  - LYMPHOCELE [None]
  - PNEUMONIA [None]
